FAERS Safety Report 8865515 (Version 1)
Quarter: 2012Q4

REPORT INFORMATION
  Report Type: 
  Country: US (occurrence: US)
  Receive Date: 20121024
  Receipt Date: 20121024
  Transmission Date: 20130627
  Serious: No
  Sender: FDA-Public Use
  Company Number: US-AMGEN-USASP2012003302

PATIENT
  Age: 54 Year
  Sex: Female
  Weight: 81.63 kg

DRUGS (4)
  1. ENBREL [Suspect]
     Indication: PRODUCT USED FOR UNKNOWN INDICATION
     Dosage: 25 mg, 2 times/wk
  2. PREDNISONE [Concomitant]
     Dosage: 1 mg, UNK
  3. RESTASIS [Concomitant]
     Dosage: 0.05 %, UNK
  4. CLOBETASOL E [Concomitant]
     Dosage: 0.05 %, UNK

REACTIONS (2)
  - Sinusitis [Unknown]
  - Gastroenteritis viral [Unknown]
